FAERS Safety Report 23899245 (Version 2)
Quarter: 2024Q3

REPORT INFORMATION
  Report Type: Spontaneous
  Country: US (occurrence: None)
  Receive Date: 20240526
  Receipt Date: 20240708
  Transmission Date: 20241017
  Serious: No
  Sender: ASTRAZENECA
  Company Number: 2024A112523

PATIENT
  Sex: Male

DRUGS (1)
  1. BYDUREON BCISE [Suspect]
     Active Substance: EXENATIDE
     Route: 058
     Dates: start: 202401

REACTIONS (6)
  - Injection site nodule [Unknown]
  - Injection site pain [Recovering/Resolving]
  - Blood glucose fluctuation [Unknown]
  - Wrong technique in device usage process [Unknown]
  - Device leakage [Unknown]
  - Incorrect dose administered by device [Unknown]
